FAERS Safety Report 5169937-2 (Version None)
Quarter: 2006Q4

REPORT INFORMATION
  Report Type: 
  Country: None (occurrence: None)
  Receive Date: 20061212
  Receipt Date: 20061204
  Transmission Date: 20070319
  Serious: Yes (Congenital Anomaly)
  Sender: FDA-Public Use
  Company Number: CH-ROCHE-473719

PATIENT
  Sex: Female

DRUGS (1)
  1. SAQUINAVIR [Suspect]
     Indication: HIV INFECTION
     Route: 065
     Dates: start: 20061015

REACTIONS (2)
  - DRUG EXPOSURE DURING PREGNANCY [None]
  - KLINEFELTER'S SYNDROME [None]
